FAERS Safety Report 9590123 (Version 2)
Quarter: 2013Q4

REPORT INFORMATION
  Report Type: Spontaneous
  Country: US (occurrence: US)
  Receive Date: 20131003
  Receipt Date: 20131003
  Transmission Date: 20140711
  Serious: No
  Sender: FDA-Public Use
  Company Number: US-AMGEN-USASP2012070092

PATIENT
  Age: 21 Year
  Sex: Female
  Weight: 45 kg

DRUGS (9)
  1. ENBREL [Suspect]
     Indication: JUVENILE IDIOPATHIC ARTHRITIS
     Dosage: 25 MG, 2 TIMES/WK
     Route: 058
     Dates: start: 200803, end: 201211
  2. APRI [Concomitant]
     Dosage: UNK
  3. LEFLUNOMIDE [Concomitant]
     Indication: JUVENILE IDIOPATHIC ARTHRITIS
     Dosage: 10 MG, QD
     Route: 048
  4. MELOXICAM [Concomitant]
     Dosage: 7.5 MG, UNK
  5. PROBIOTIC                          /06395501/ [Concomitant]
     Dosage: UNK
  6. MULTIVITAMIN                       /00097801/ [Concomitant]
     Dosage: UNK
  7. CALCIUM [Concomitant]
     Dosage: 500 UNK, UNK
  8. FERREX [Concomitant]
     Dosage: UNK
     Route: 048
     Dates: start: 20121009
  9. MOBEZ [Concomitant]
     Indication: PAIN
     Dosage: 7.5 MG, BID, AS NEEDED
     Route: 048

REACTIONS (8)
  - Headache [Unknown]
  - Injection site reaction [Unknown]
  - Injection site erythema [Unknown]
  - Injection site pruritus [Unknown]
  - Injection site swelling [Unknown]
  - Injection site pain [Unknown]
  - Drug ineffective [Unknown]
  - Pain [Unknown]
